FAERS Safety Report 6360636-8 (Version None)
Quarter: 2009Q3

REPORT INFORMATION
  Report Type: 
  Country: None (occurrence: None)
  Receive Date: 20090915
  Receipt Date: 20090907
  Transmission Date: 20100115
  Serious: Yes (Death, Hospitalization, Other)
  Sender: FDA-Public Use
  Company Number: 2009US003410

PATIENT
  Age: 64 Year
  Sex: Male

DRUGS (3)
  1. PROGRAF [Suspect]
     Indication: RENAL TRANSPLANT
     Dosage: 1 MG, BID,
  2. MYCOPHENOLATE MOFETIL [Suspect]
     Indication: RENAL TRANSPLANT
     Dosage: 750 MG, BID,
  3. PREDNISONE TAB [Suspect]
     Indication: RENAL TRANSPLANT
     Dosage: 10 MG, UID/QD,

REACTIONS (7)
  - ACUTE RESPIRATORY DISTRESS SYNDROME [None]
  - CRYPTOCOCCAL CUTANEOUS INFECTION [None]
  - CRYPTOCOCCOSIS [None]
  - ENTEROBACTER INFECTION [None]
  - MENTAL STATUS CHANGES [None]
  - RENAL FAILURE ACUTE [None]
  - WEIGHT DECREASED [None]
